FAERS Safety Report 8809220 (Version 2)
Quarter: 2012Q4

REPORT INFORMATION
  Report Type: 
  Country: GR (occurrence: GR)
  Receive Date: 20120926
  Receipt Date: 20121031
  Transmission Date: 20130627
  Serious: Yes (Hospitalization)
  Sender: FDA-Public Use
  Company Number: PHHY2012GR081950

PATIENT
  Age: 31 Year
  Sex: Female

DRUGS (1)
  1. THIAMAZOLE [Suspect]

REACTIONS (13)
  - Acute generalised exanthematous pustulosis [Unknown]
  - Myalgia [Unknown]
  - Arthralgia [Unknown]
  - Chills [Unknown]
  - Malaise [Unknown]
  - Pyrexia [Recovered/Resolved]
  - Rash [Recovered/Resolved]
  - Rash erythematous [Recovered/Resolved]
  - Rash pustular [Recovered/Resolved]
  - Skin burning sensation [Unknown]
  - Pruritus [Unknown]
  - Leukocytosis [Recovered/Resolved]
  - Acanthosis [Unknown]
